FAERS Safety Report 22255907 (Version 1)
Quarter: 2023Q2

REPORT INFORMATION
  Report Type: Spontaneous
  Country: US (occurrence: US)
  Receive Date: 20230426
  Receipt Date: 20230426
  Transmission Date: 20230721
  Serious: Yes (Other)
  Sender: FDA-Public Use
  Company Number: US-009507513-2304USA008468

PATIENT
  Age: 29 Year
  Sex: Female

DRUGS (4)
  1. KEYTRUDA [Suspect]
     Active Substance: PEMBROLIZUMAB
  2. GEMCITABINE [Concomitant]
     Active Substance: GEMCITABINE
  3. VINORELBINE [Concomitant]
     Active Substance: VINORELBINE TARTRATE
  4. DOXORUBICIN [Concomitant]
     Active Substance: DOXORUBICIN

REACTIONS (1)
  - Immune-mediated hepatitis [Recovered/Resolved]
